FAERS Safety Report 9108436 (Version 1)
Quarter: 2013Q1

REPORT INFORMATION
  Report Type: Spontaneous
  Country: SE (occurrence: SE)
  Receive Date: 20130222
  Receipt Date: 20130222
  Transmission Date: 20140127
  Serious: Yes (Life-Threatening)
  Sender: FDA-Public Use
  Company Number: SE-009507513-1302SWE010133

PATIENT
  Age: 63 Year
  Sex: Male

DRUGS (5)
  1. EPTIFIBATIDE [Suspect]
     Indication: THROMBOSIS PROPHYLAXIS
     Dosage: UNK
  2. TROMBYL [Suspect]
     Indication: THROMBOSIS PROPHYLAXIS
     Dosage: UNK
  3. FRAGMIN [Suspect]
     Indication: THROMBOSIS PROPHYLAXIS
  4. BRILIQUE [Suspect]
     Indication: THROMBOSIS PROPHYLAXIS
     Dosage: 180 MG DAILY
     Route: 048
  5. SIMDAX [Concomitant]
     Indication: DYSPNOEA

REACTIONS (1)
  - Post procedural haemorrhage [Not Recovered/Not Resolved]
